FAERS Safety Report 10530248 (Version 2)
Quarter: 2014Q4

REPORT INFORMATION
  Report Type: Spontaneous
  Country: US (occurrence: US)
  Receive Date: 20141021
  Receipt Date: 20141105
  Transmission Date: 20150528
  Serious: Yes (Other)
  Sender: FDA-Public Use
  Company Number: US-PFIZER INC-2014289615

PATIENT
  Sex: Female

DRUGS (5)
  1. LYRICA [Suspect]
     Active Substance: PREGABALIN
     Indication: TRIGEMINAL NEURALGIA
     Dosage: 150 MG A DAY
  2. LYRICA [Suspect]
     Active Substance: PREGABALIN
     Dosage: 750 MG, UNK
  3. KEPPRA [Concomitant]
     Active Substance: LEVETIRACETAM
     Dosage: UNK
     Dates: start: 2010
  4. FIORICET [Concomitant]
     Active Substance: ACETAMINOPHEN\BUTALBITAL\CAFFEINE
     Dosage: UNK
  5. INDERAL [Concomitant]
     Active Substance: PROPRANOLOL HYDROCHLORIDE
     Dosage: UNK

REACTIONS (8)
  - Memory impairment [Unknown]
  - Asthenia [Unknown]
  - Drug prescribing error [Unknown]
  - Partial seizures [Recovered/Resolved]
  - Feeling abnormal [Unknown]
  - Visual acuity reduced [Recovering/Resolving]
  - Skin discolouration [Unknown]
  - Urticaria [Unknown]

NARRATIVE: CASE EVENT DATE: 2012
